FAERS Safety Report 9444518 (Version 1)
Quarter: 2013Q3

REPORT INFORMATION
  Report Type: Spontaneous
  Country: US (occurrence: US)
  Receive Date: 20130807
  Receipt Date: 20130807
  Transmission Date: 20140515
  Serious: No
  Sender: FDA-Public Use
  Company Number: US-PFIZER INC-2013228094

PATIENT
  Sex: Female
  Weight: 67.12 kg

DRUGS (3)
  1. ADVIL PM [Suspect]
     Indication: SLEEP DISORDER
     Dosage: UNK
  2. ADVIL PM [Suspect]
     Dosage: 200 MG, ONCE
     Dates: start: 2013, end: 2013
  3. SIMVASTATIN [Concomitant]
     Indication: BLOOD CHOLESTEROL ABNORMAL
     Dosage: 20 MG, DAILY

REACTIONS (3)
  - Drug ineffective [Unknown]
  - Agitation [Unknown]
  - Tremor [Unknown]
